FAERS Safety Report 23927626 (Version 4)
Quarter: 2025Q4

REPORT INFORMATION
  Report Type: Report from Study
  Country: CO (occurrence: CO)
  Receive Date: 20240531
  Receipt Date: 20251223
  Transmission Date: 20260117
  Serious: Yes (Hospitalization, Other)
  Sender: ABBVIE
  Company Number: CO-ABBVIE-5781451

PATIENT
  Age: 63 Year
  Sex: Female

DRUGS (55)
  1. VENETOCLAX [Suspect]
     Active Substance: VENETOCLAX
     Indication: Acute myeloid leukaemia
     Dosage: 200 MG PER ORAL EVERY 24 HOURS; INITIAL; CYCLE 1
     Route: 048
     Dates: start: 20240423, end: 20240516
  2. VENETOCLAX [Suspect]
     Active Substance: VENETOCLAX
     Indication: Acute myeloid leukaemia
     Dosage: 200 MG PER ORAL EVERY 24 HOURS; MAINTENANCE; CYCLE 4
     Route: 048
     Dates: start: 20240722, end: 20240811
  3. VENETOCLAX [Suspect]
     Active Substance: VENETOCLAX
     Indication: Acute myeloid leukaemia
     Dosage: 200 MG PER ORAL EVERY 24 HOURS; MAINTENANCE; CYCLE 6
     Route: 048
     Dates: start: 20241113, end: 20241203
  4. VENETOCLAX [Suspect]
     Active Substance: VENETOCLAX
     Indication: Acute myeloid leukaemia
     Dosage: 200 MG PER ORAL EVERY 24 HOURS; MAINTENANCE; CYCLE 5
     Route: 048
     Dates: start: 20240827, end: 20240916
  5. VENETOCLAX [Suspect]
     Active Substance: VENETOCLAX
     Indication: Acute myeloid leukaemia
     Dosage: 200MG /120MG C/24H, CYCLE 3
     Route: 048
     Dates: start: 20240624, end: 20240714
  6. VENETOCLAX [Suspect]
     Active Substance: VENETOCLAX
     Indication: Acute myeloid leukaemia
     Dosage: 200 MG PER ORAL EVERY 24 HOURS; MAINTENANCE; CYCLE 2
     Route: 048
     Dates: start: 20240522, end: 20240524
  7. VENETOCLAX [Suspect]
     Active Substance: VENETOCLAX
     Indication: Acute myeloid leukaemia
     Dosage: 200 MG PER ORAL EVERY 24 HOURS; MAINTENANCE; CYCLE 7
     Route: 048
     Dates: start: 20250108, end: 20250128
  8. VENETOCLAX [Suspect]
     Active Substance: VENETOCLAX
     Indication: Acute myeloid leukaemia
     Dosage: 200 MG PER ORAL EVERY 24 HOURS; MAINTENANCE; CYCLE 8
     Route: 048
     Dates: start: 20250217, end: 20250309
  9. VENETOCLAX [Suspect]
     Active Substance: VENETOCLAX
     Indication: Acute myeloid leukaemia
     Dosage: 200 MG PER ORAL EVERY 24 HOURS; MAINTENANCE; CYCLE 9
     Route: 048
     Dates: start: 20250331, end: 20250413
  10. VENETOCLAX [Suspect]
     Active Substance: VENETOCLAX
     Indication: Acute myeloid leukaemia
     Dosage: 200 MG PER ORAL EVERY 24 HOURS; MAINTENANCE; CYCLE 10
     Route: 048
     Dates: start: 20250519, end: 20250601
  11. VENETOCLAX [Suspect]
     Active Substance: VENETOCLAX
     Indication: Acute myeloid leukaemia
     Dosage: 200 MG PER ORAL EVERY 24 HOURS; MAINTENANCE; CYCLE 11
     Route: 048
     Dates: start: 20250616, end: 20250629
  12. VENETOCLAX [Suspect]
     Active Substance: VENETOCLAX
     Indication: Acute myeloid leukaemia
     Dosage: 200 MG PER ORAL EVERY 24 HOURS; MAINTENANCE; CYCLE 12
     Route: 048
     Dates: start: 20250728, end: 20250803
  13. VENETOCLAX [Suspect]
     Active Substance: VENETOCLAX
     Indication: Acute myeloid leukaemia
     Dosage: 200 MG PER ORAL EVERY 24 HOURS; MAINTENANCE; CYCLE 14
     Route: 048
     Dates: start: 20251029, end: 20251104
  14. VENETOCLAX [Suspect]
     Active Substance: VENETOCLAX
     Indication: Acute myeloid leukaemia
     Dosage: 200 MG PER ORAL EVERY 24 HOURS; MAINTENANCE; CYCLE 13
     Route: 048
     Dates: start: 20250901, end: 20250907
  15. ONDANSETRON [Concomitant]
     Active Substance: ONDANSETRON
     Indication: Prophylaxis of nausea and vomiting
     Route: 042
     Dates: start: 20240422, end: 20240429
  16. ONDANSETRON [Concomitant]
     Active Substance: ONDANSETRON
     Indication: Prophylaxis of nausea and vomiting
     Dosage: AMPOULE
     Route: 042
     Dates: start: 20241113, end: 20241121
  17. ONDANSETRON [Concomitant]
     Active Substance: ONDANSETRON
     Indication: Prophylaxis of nausea and vomiting
     Route: 042
     Dates: start: 20240722, end: 20240730
  18. ONDANSETRON [Concomitant]
     Active Substance: ONDANSETRON
     Indication: Prophylaxis of nausea and vomiting
     Route: 042
     Dates: start: 20240827, end: 20240904
  19. ONDANSETRON [Concomitant]
     Active Substance: ONDANSETRON
     Indication: Prophylaxis of nausea and vomiting
     Route: 048
     Dates: start: 20250108, end: 20250116
  20. ONDANSETRON [Concomitant]
     Active Substance: ONDANSETRON
     Indication: Prophylaxis of nausea and vomiting
     Route: 048
     Dates: start: 20250217, end: 20250225
  21. ONDANSETRON [Concomitant]
     Active Substance: ONDANSETRON
     Indication: Prophylaxis of nausea and vomiting
     Route: 048
     Dates: start: 20250331, end: 20250408
  22. ACETAMINOPHEN\CAFFEINE [Concomitant]
     Active Substance: ACETAMINOPHEN\CAFFEINE
     Indication: Pain prophylaxis
     Dosage: 500 MG/65 MG
     Route: 048
     Dates: start: 20240423
  23. ESOMEPRAZOLE [Concomitant]
     Active Substance: ESOMEPRAZOLE
     Indication: Gastrointestinal disorder prophylaxis
     Dosage: 40 MILLIGRAM
     Route: 048
     Dates: start: 20240418
  24. ESOMEPRAZOLE [Concomitant]
     Active Substance: ESOMEPRAZOLE
     Indication: Gastrointestinal disorder prophylaxis
     Dosage: 40 MILLIGRAM
     Route: 048
     Dates: start: 20240418
  25. ENALAPRIL [Concomitant]
     Active Substance: ENALAPRIL
     Indication: Hypertension
     Dosage: 20 MILLIGRAM
     Route: 048
     Dates: start: 2014
  26. ENALAPRIL [Concomitant]
     Active Substance: ENALAPRIL
     Indication: Hypertension
     Dosage: 20 MILLIGRAM
     Route: 048
     Dates: start: 2014
  27. PREGABALIN [Concomitant]
     Active Substance: PREGABALIN
     Indication: Pain prophylaxis
     Dosage: 150 MILLIGRAM
     Route: 048
     Dates: start: 20240423
  28. PREGABALIN [Concomitant]
     Active Substance: PREGABALIN
     Indication: Pain prophylaxis
     Dosage: 150 MILLIGRAM
     Route: 048
     Dates: start: 20240423
  29. LACTULOSE [Concomitant]
     Active Substance: LACTULOSE
     Indication: Constipation
     Dosage: 15 MILLILITER
     Route: 048
     Dates: start: 20240429, end: 20240507
  30. LACTULOSE [Concomitant]
     Active Substance: LACTULOSE
     Indication: Constipation
     Dosage: 15 MILLILITER
     Route: 048
     Dates: start: 20240429, end: 20240507
  31. SULFAMETHOXAZOLE\TRIMETHOPRIM [Concomitant]
     Active Substance: SULFAMETHOXAZOLE\TRIMETHOPRIM
     Indication: Antibiotic prophylaxis
     Dosage: 160MG/800 MG
     Route: 048
     Dates: start: 20240418
  32. ACYCLOVIR [Concomitant]
     Active Substance: ACYCLOVIR
     Indication: Antiviral prophylaxis
     Route: 048
     Dates: start: 20240418
  33. KETOROLAC [Concomitant]
     Active Substance: KETOROLAC TROMETHAMINE
     Indication: Pain prophylaxis
     Route: 042
     Dates: start: 20240423, end: 20240425
  34. LACTATED RINGERS SOLUTION [Concomitant]
     Active Substance: CALCIUM CHLORIDE\POTASSIUM CHLORIDE\SODIUM CHLORIDE\SODIUM LACTATE
     Indication: Prophylaxis against dehydration
     Dosage: 62 MILLILITER
     Route: 042
     Dates: start: 20240427, end: 20240507
  35. LACTATED RINGERS SOLUTION [Concomitant]
     Active Substance: CALCIUM CHLORIDE\POTASSIUM CHLORIDE\SODIUM CHLORIDE\SODIUM LACTATE
     Indication: Prophylaxis against dehydration
     Dosage: 62 MILLILITER; FREQUENCY TEXT: CONTINUED INFUSION
     Route: 042
     Dates: start: 20240427, end: 20240507
  36. FLUCONAZOLE [Concomitant]
     Active Substance: FLUCONAZOLE
     Indication: Antifungal prophylaxis
     Dosage: 400 MILLIGRAM
     Route: 048
     Dates: start: 20240429
  37. FLUCONAZOLE [Concomitant]
     Active Substance: FLUCONAZOLE
     Indication: Antifungal prophylaxis
     Dosage: 400 MILLIGRAM
     Route: 048
     Dates: start: 20240429, end: 20250501
  38. TAPENTADOL [Concomitant]
     Active Substance: TAPENTADOL
     Indication: Pain prophylaxis
     Route: 048
     Dates: start: 20240423
  39. AZACITIDINE [Suspect]
     Active Substance: AZACITIDINE
     Indication: Acute myeloid leukaemia
     Dosage: 120 MILLIGRAM?INITIAL DOSE, CYCLE 1
     Route: 058
     Dates: start: 20240423, end: 20240429
  40. AZACITIDINE [Suspect]
     Active Substance: AZACITIDINE
     Indication: Acute myeloid leukaemia
     Dosage: 120 MG SUBCUTANEOUSLY EVERY 24 HOURS; MAINTENANCE , CYCLE 3
     Route: 058
     Dates: start: 20240624, end: 20240630
  41. AZACITIDINE [Suspect]
     Active Substance: AZACITIDINE
     Indication: Acute myeloid leukaemia
     Dosage: 120 MG SUBCUTANEOUSLY EVERY 24 HOURS; MAINTENANCE , CYCLE 4
     Route: 058
     Dates: start: 20240722, end: 20240730
  42. AZACITIDINE [Suspect]
     Active Substance: AZACITIDINE
     Indication: Acute myeloid leukaemia
     Dosage: 120 MG SUBCUTANEOUSLY EVERY 24 HOURS; MAINTENANCE , CYCLE 5
     Route: 058
     Dates: start: 20240827, end: 20240904
  43. AZACITIDINE [Suspect]
     Active Substance: AZACITIDINE
     Indication: Acute myeloid leukaemia
     Dosage: 120 MG SUBCUTANEOUSLY EVERY 24 HOURS; MAINTENANCE , CYCLE 2
     Route: 058
     Dates: start: 20240522, end: 20240524
  44. AZACITIDINE [Suspect]
     Active Substance: AZACITIDINE
     Indication: Acute myeloid leukaemia
     Dosage: 120 MG SUBCUTANEOUSLY EVERY 24 HOURS; MAINTENANCE , CYCLE 6
     Route: 058
     Dates: start: 20241113, end: 20241121
  45. AZACITIDINE [Suspect]
     Active Substance: AZACITIDINE
     Indication: Acute myeloid leukaemia
     Dosage: 120 MG SUBCUTANEOUSLY EVERY 24 HOURS; MAINTENANCE , CYCLE 7
     Route: 058
     Dates: start: 20250108, end: 20250116
  46. AZACITIDINE [Suspect]
     Active Substance: AZACITIDINE
     Indication: Acute myeloid leukaemia
     Dosage: 120 MG SUBCUTANEOUSLY EVERY 24 HOURS; MAINTENANCE , CYCLE 8
     Route: 058
     Dates: start: 20250217, end: 20250225
  47. AZACITIDINE [Suspect]
     Active Substance: AZACITIDINE
     Indication: Acute myeloid leukaemia
     Dosage: 120 MG SUBCUTANEOUSLY EVERY 24 HOURS; MAINTENANCE , CYCLE 9
     Route: 058
     Dates: start: 20250331, end: 20250408
  48. AZACITIDINE [Suspect]
     Active Substance: AZACITIDINE
     Indication: Acute myeloid leukaemia
     Dosage: 120 MG SUBCUTANEOUSLY EVERY 24 HOURS; MAINTENANCE , CYCLE 10
     Route: 058
     Dates: start: 20250519, end: 20250527
  49. AZACITIDINE [Suspect]
     Active Substance: AZACITIDINE
     Indication: Acute myeloid leukaemia
     Dosage: 120 MG SUBCUTANEOUSLY EVERY 24 HOURS; MAINTENANCE , CYCLE 11
     Route: 058
     Dates: start: 20250616, end: 20250625
  50. AZACITIDINE [Suspect]
     Active Substance: AZACITIDINE
     Indication: Acute myeloid leukaemia
     Dosage: 120 MG SUBCUTANEOUSLY EVERY 24 HOURS; MAINTENANCE , CYCLE 12
     Route: 058
     Dates: start: 20250728, end: 20250805
  51. AZACITIDINE [Suspect]
     Active Substance: AZACITIDINE
     Indication: Acute myeloid leukaemia
     Dosage: 120 MG SUBCUTANEOUSLY EVERY 24 HOURS; MAINTENANCE , CYCLE 13
     Route: 058
     Dates: start: 20250901, end: 20250909
  52. AZACITIDINE [Suspect]
     Active Substance: AZACITIDINE
     Indication: Acute myeloid leukaemia
     Dosage: 120 MG SUBCUTANEOUSLY EVERY 24 HOURS; MAINTENANCE , CYCLE 14
     Route: 058
     Dates: start: 20251029, end: 20251107
  53. ALLOPURINOL [Concomitant]
     Active Substance: ALLOPURINOL
     Indication: Prophylaxis
     Dosage: 300 MILLIGRAM
     Route: 048
     Dates: start: 20240418, end: 20240507
  54. ALLOPURINOL [Concomitant]
     Active Substance: ALLOPURINOL
     Indication: Prophylaxis
     Dosage: 300 MILLIGRAM
     Route: 048
     Dates: start: 20240418, end: 20240507
  55. NEFOPAM [Concomitant]
     Active Substance: NEFOPAM
     Indication: Pain prophylaxis
     Route: 042
     Dates: start: 20240423, end: 20240430

REACTIONS (13)
  - Neutropenia [Recovered/Resolved]
  - Hypokalaemia [Unknown]
  - Febrile neutropenia [Recovering/Resolving]
  - Clostridium difficile infection [Unknown]
  - Pain in extremity [Unknown]
  - Toxicity to various agents [Unknown]
  - Pneumonia [Unknown]
  - Constipation [Recovered/Resolved]
  - Thrombosis [Recovering/Resolving]
  - Peripheral vein thrombosis [Not Recovered/Not Resolved]
  - Neutropenia [Recovered/Resolved]
  - Neutropenia [Recovered/Resolved]
  - Neutropenia [Recovered/Resolved]

NARRATIVE: CASE EVENT DATE: 20240101
